FAERS Safety Report 4644167-9 (Version None)
Quarter: 2005Q2

REPORT INFORMATION
  Report Type: 
  Country: None (occurrence: None)
  Receive Date: 20050425
  Receipt Date: 20050422
  Transmission Date: 20051028
  Serious: Yes (Hospitalization)
  Sender: FDA-Public Use
  Company Number: FR-GLAXOSMITHKLINE-B0378870A

PATIENT
  Age: 59 Year
  Sex: Male

DRUGS (2)
  1. CLAMOXYL [Suspect]
     Dosage: 12G PER DAY
     Route: 042
     Dates: start: 20031214, end: 20040125
  2. GENTAMYCIN INJECTION [Concomitant]
     Dosage: 120MG TWICE PER DAY
     Route: 042
     Dates: start: 20031214, end: 20031228

REACTIONS (7)
  - AGITATION [None]
  - ATTENTION DEFICIT/HYPERACTIVITY DISORDER [None]
  - CONFUSIONAL STATE [None]
  - DISORIENTATION [None]
  - INCOHERENT [None]
  - MEMORY IMPAIRMENT [None]
  - MENTAL RETARDATION SEVERITY UNSPECIFIED [None]
